FAERS Safety Report 14347944 (Version 1)
Quarter: 2018Q1

REPORT INFORMATION
  Report Type: Spontaneous
  Country: US (occurrence: US)
  Receive Date: 20180103
  Receipt Date: 20180103
  Transmission Date: 20180509
  Serious: No
  Sender: FDA-Public Use
  Company Number: US-BAYER-2018-000787

PATIENT
  Age: 41 Year
  Sex: Female
  Weight: 135 kg

DRUGS (1)
  1. MIRALAX [Suspect]
     Active Substance: POLYETHYLENE GLYCOL 3350
     Dosage: UNK
     Dates: start: 20171227, end: 20171231

REACTIONS (3)
  - Product taste abnormal [None]
  - Product quality issue [None]
  - Poor quality drug administered [None]
